FAERS Safety Report 10011828 (Version 1)
Quarter: 2014Q1

REPORT INFORMATION
  Report Type: Spontaneous
  Country: GB (occurrence: GB)
  Receive Date: 20140314
  Receipt Date: 20140314
  Transmission Date: 20141002
  Serious: Yes (Other)
  Sender: FDA-Public Use
  Company Number: GB-PFIZER INC-2014067811

PATIENT
  Age: 68 Year
  Sex: Female
  Weight: 87 kg

DRUGS (2)
  1. CHAMPIX [Suspect]
     Indication: SMOKING CESSATION THERAPY
     Dosage: 1 MG, TWICE A DAY
     Route: 048
     Dates: start: 20140110, end: 20140216
  2. AMLODIPINE BESILATE [Concomitant]
     Dosage: UNK TAKING THIS FOR MANY YEARS.

REACTIONS (4)
  - Mood altered [Recovered/Resolved]
  - Apathy [Unknown]
  - Somnolence [Unknown]
  - Flat affect [Unknown]
